FAERS Safety Report 12504499 (Version 1)
Quarter: 2016Q2

REPORT INFORMATION
  Report Type: Spontaneous
  Country: GB (occurrence: GB)
  Receive Date: 20160628
  Receipt Date: 20160628
  Transmission Date: 20160815
  Serious: Yes (Other)
  Sender: FDA-Public Use
  Company Number: GB-DRREDDYS-GER/UKI/16/0080807

PATIENT
  Age: 61 Year
  Sex: Female
  Weight: 59.87 kg

DRUGS (1)
  1. AMLODIPINE [Suspect]
     Active Substance: AMLODIPINE BESYLATE
     Indication: HYPERTENSION
     Route: 048
     Dates: start: 20160428, end: 20160505

REACTIONS (4)
  - Pain [Recovering/Resolving]
  - Peripheral swelling [Recovering/Resolving]
  - Skin ulcer [Recovering/Resolving]
  - Joint swelling [Recovering/Resolving]
